FAERS Safety Report 17772753 (Version 1)
Quarter: 2020Q2

REPORT INFORMATION
  Report Type: Spontaneous
  Country: GB (occurrence: GB)
  Receive Date: 20200512
  Receipt Date: 20200512
  Transmission Date: 20200714
  Serious: Yes (Hospitalization, Other)
  Sender: FDA-Public Use
  Company Number: GB-PFIZER INC-2020185857

PATIENT
  Sex: Male

DRUGS (4)
  1. MYFENAX [Suspect]
     Active Substance: MYCOPHENOLATE MOFETIL
     Dosage: 1500 MG, 1X/DAY
     Route: 048
  2. RAPAMUNE [Suspect]
     Active Substance: SIROLIMUS
     Dosage: 1 MG
     Route: 065
  3. PREDNISOLONE. [Suspect]
     Active Substance: PREDNISOLONE
     Dosage: 5 MG
     Route: 065
  4. VALGANCICLOVIR HYDROCHLORIDE. [Suspect]
     Active Substance: VALGANCICLOVIR HYDROCHLORIDE
     Dosage: 450 MG
     Route: 065

REACTIONS (2)
  - Fluid retention [Unknown]
  - Renal impairment [Unknown]
